FAERS Safety Report 5625751-2 (Version None)
Quarter: 2007Q4

REPORT INFORMATION
  Report Type: 
  Country: None (occurrence: None)
  Receive Date: 20071212
  Receipt Date: 20071212
  Transmission Date: 20080405
  Serious: Yes (Other)
  Sender: FDA-Public Use
  Company Number: None

PATIENT
  Sex: Male
  Weight: 91.173 kg

DRUGS (1)
  1. ENCARE BLAIREX LABORATORIES, INC. [Suspect]
     Indication: CONTRACEPTION
     Dosage: 1 PRIOR TO INTERCOUR VAG
     Route: 067
     Dates: start: 20071208, end: 20071208

REACTIONS (1)
  - DYSURIA [None]
